FAERS Safety Report 21931281 (Version 1)
Quarter: 2023Q1

REPORT INFORMATION
  Report Type: Spontaneous
  Country: US (occurrence: US)
  Receive Date: 20230131
  Receipt Date: 20230131
  Transmission Date: 20230417
  Serious: No
  Sender: FDA-Public Use
  Company Number: US-CIPLA LTD.-2022US06403

PATIENT

DRUGS (2)
  1. ALBUTEROL [Suspect]
     Active Substance: ALBUTEROL
     Indication: Asthma
     Dosage: 0.18 MILLIGRAM, PRN (2 PUFF, PRN)
  2. ALBUTEROL [Suspect]
     Active Substance: ALBUTEROL
     Dosage: 0.18 MILLIGRAM, PRN (2 PUFF, PRN)
     Dates: start: 20221011

REACTIONS (5)
  - Dyspnoea [Recovered/Resolved]
  - Expired product administered [Unknown]
  - Device defective [Unknown]
  - Device delivery system issue [Unknown]
  - Product cleaning inadequate [Unknown]

NARRATIVE: CASE EVENT DATE: 20221012
